FAERS Safety Report 6804110-0 (Version None)
Quarter: 2010Q2

REPORT INFORMATION
  Report Type: 
  Country: None (occurrence: None)
  Receive Date: 20100628
  Receipt Date: 20070416
  Transmission Date: 20101027
  Serious: Yes (Other)
  Sender: FDA-Public Use
  Company Number: US-PFIZER INC-2006028824

PATIENT
  Sex: Female
  Weight: 54 kg

DRUGS (3)
  1. GEODON [Suspect]
     Route: 048
  2. ACETYLSALICYLIC ACID ENTERIC COATED [Concomitant]
     Route: 048
  3. PAXIL [Concomitant]
     Route: 065

REACTIONS (6)
  - BALANCE DISORDER [None]
  - CONFUSIONAL STATE [None]
  - FALL [None]
  - GAIT DISTURBANCE [None]
  - POSTURE ABNORMAL [None]
  - TARDIVE DYSKINESIA [None]
